FAERS Safety Report 9797139 (Version 1)
Quarter: 2014Q1

REPORT INFORMATION
  Report Type: Report from Study
  Country: AR (occurrence: AR)
  Receive Date: 20140106
  Receipt Date: 20140106
  Transmission Date: 20141002
  Serious: Yes (Hospitalization)
  Sender: FDA-Public Use
  Company Number: PHHY2013AR154359

PATIENT
  Sex: Male

DRUGS (2)
  1. DIOVAN D [Suspect]
     Indication: HYPERTENSION
     Dosage: 1 DF, (160MG VALS AND 12.5MG HCTZ), DAILY
     Route: 048
     Dates: start: 2011, end: 201210
  2. DIOVAN D [Suspect]
     Dosage: 1 DF (160MG VALS AND 12.5MG HCTZ), DAILY
     Route: 048
     Dates: start: 201301

REACTIONS (2)
  - Haemorrhagic stroke [Recovered/Resolved]
  - Gait disturbance [Unknown]
